FAERS Safety Report 5061067-3 (Version None)
Quarter: 2006Q3

REPORT INFORMATION
  Report Type: 
  Country: None (occurrence: None)
  Receive Date: 20060725
  Receipt Date: 20060713
  Transmission Date: 20061208
  Serious: Yes (Life-Threatening, Hospitalization)
  Sender: FDA-Public Use
  Company Number: DE-ROCHE-455351

PATIENT
  Age: 39 Year
  Sex: Male

DRUGS (4)
  1. ZENAPAX [Suspect]
     Route: 065
     Dates: start: 20060415
  2. FK506 [Suspect]
     Dosage: TAKEN IN THE EVENING.
     Route: 048
     Dates: start: 20060429, end: 20060429
  3. FK506 [Suspect]
     Route: 048
     Dates: start: 20060430, end: 20060430
  4. MYCOPHENOLATE MOFETIL [Concomitant]
     Dates: start: 20060429, end: 20060429

REACTIONS (2)
  - RENAL FAILURE ACUTE [None]
  - TRANSPLANT FAILURE [None]
